FAERS Safety Report 4655949-1 (Version None)
Quarter: 2005Q2

REPORT INFORMATION
  Report Type: 
  Country: None (occurrence: None)
  Receive Date: 20050505
  Receipt Date: 20050419
  Transmission Date: 20051028
  Serious: Yes (Hospitalization)
  Sender: FDA-Public Use
  Company Number: EWC050443667

PATIENT
  Age: 35 Year
  Sex: Male
  Weight: 80 kg

DRUGS (5)
  1. HUMULIN 70/30 [Suspect]
     Indication: DIABETES MELLITUS
     Dosage: 50 U/1 DAY
     Dates: start: 20010101
  2. HUMALOG [Suspect]
     Indication: DIABETES MELLITUS
     Dosage: 36 U DAY
     Dates: start: 20050420
  3. HUMALOG-HUMAN INSULIN (RDNA): 25% LISPRO, 70% NPL (LI [Suspect]
     Indication: DIABETES MELLITUS
     Dosage: 36 U DAY
     Dates: start: 20050411, end: 20050420
  4. HUMULIN N [Suspect]
     Indication: DIABETES MELLITUS
     Dosage: 18 U/1 AT BEDTIME
     Dates: start: 20050411
  5. EPILIM (VALPROATE SODIUM) [Concomitant]

REACTIONS (8)
  - CLUSTER HEADACHE [None]
  - DIABETES MELLITUS INADEQUATE CONTROL [None]
  - DIARRHOEA [None]
  - DRUG DISPENSING ERROR [None]
  - GASTRITIS [None]
  - GLYCOSYLATED HAEMOGLOBIN INCREASED [None]
  - HYPERCHOLESTEROLAEMIA [None]
  - HYPERTENSION [None]
